FAERS Safety Report 6231873-8 (Version None)
Quarter: 2009Q2

REPORT INFORMATION
  Report Type: 
  Country: None (occurrence: None)
  Receive Date: 20090612
  Receipt Date: 20090612
  Transmission Date: 20091009
  Serious: Yes (Hospitalization)
  Sender: FDA-Public Use
  Company Number: None

PATIENT
  Age: 31 Year
  Sex: Female
  Weight: 80 kg

DRUGS (4)
  1. YAZ [Suspect]
     Indication: CONTRACEPTION
     Dosage: 1 TAB DAILY OTHER
  2. PRILOSEC [Concomitant]
  3. CLARITIN [Concomitant]
  4. ZOLOFT [Concomitant]

REACTIONS (1)
  - PULMONARY EMBOLISM [None]
